FAERS Safety Report 24112905 (Version 2)
Quarter: 2024Q3

REPORT INFORMATION
  Report Type: Spontaneous
  Country: BR (occurrence: BR)
  Receive Date: 20240719
  Receipt Date: 20240805
  Transmission Date: 20241017
  Serious: Yes (Death, Other)
  Sender: MERCK
  Company Number: BR-009507513-2305BRA004528

PATIENT
  Age: 72 Year
  Sex: Female

DRUGS (3)
  1. KEYTRUDA [Suspect]
     Active Substance: PEMBROLIZUMAB
     Indication: Breast cancer
     Dosage: UNK
  2. KEYTRUDA [Suspect]
     Active Substance: PEMBROLIZUMAB
     Dosage: UNK
  3. KEYTRUDA [Suspect]
     Active Substance: PEMBROLIZUMAB
     Dosage: UNK

REACTIONS (4)
  - Cardiac arrest [Fatal]
  - Malignant neoplasm progression [Unknown]
  - Labyrinthitis [Unknown]
  - Product use in unapproved indication [Unknown]
